FAERS Safety Report 6472729-5 (Version None)
Quarter: 2009Q4

REPORT INFORMATION
  Report Type: 
  Country: None (occurrence: None)
  Receive Date: 20091201
  Receipt Date: 20091119
  Transmission Date: 20100525
  Serious: Yes (Congenital Anomaly)
  Sender: FDA-Public Use
  Company Number: 2009SP037333

PATIENT

DRUGS (1)
  1. IMPLANON [Suspect]
     Indication: PREGNANCY
     Dosage: ;UNK;TRPL
     Route: 064
     Dates: start: 20090716, end: 20090826

REACTIONS (3)
  - ABORTION INDUCED [None]
  - MATERNAL DRUGS AFFECTING FOETUS [None]
  - TRISOMY 21 [None]
